FAERS Safety Report 6577680-8 (Version None)
Quarter: 2010Q1

REPORT INFORMATION
  Report Type: 
  Country: None (occurrence: None)
  Receive Date: 20100211
  Receipt Date: 20100205
  Transmission Date: 20100710
  Serious: Yes (Hospitalization)
  Sender: FDA-Public Use
  Company Number: PHHO2010NZ02021

PATIENT
  Sex: Female

DRUGS (2)
  1. CERTICAN [Suspect]
     Indication: RENAL TRANSPLANT
     Dosage: 0.75MG
     Route: 048
  2. CEFTRIAXONE [Concomitant]

REACTIONS (3)
  - ABDOMINAL PAIN [None]
  - CYST DRAINAGE [None]
  - LYMPHOCELE [None]
